FAERS Safety Report 17119578 (Version 1)
Quarter: 2019Q4

REPORT INFORMATION
  Report Type: Report from Study
  Country: DE (occurrence: DE)
  Receive Date: 20191206
  Receipt Date: 20191206
  Transmission Date: 20200122
  Serious: Yes (Hospitalization)
  Sender: FDA-Public Use
  Company Number: DE-BIOGEN-2016BI00295159

PATIENT
  Age: 33 Year
  Sex: Male
  Weight: 81 kg

DRUGS (4)
  1. CALCIUM SANDOZ FORTE [Concomitant]
     Indication: PROPHYLAXIS
     Route: 048
     Dates: start: 20160905, end: 20160907
  2. TYSABRI [Suspect]
     Active Substance: NATALIZUMAB
     Indication: MULTIPLE SCLEROSIS
     Route: 042
     Dates: start: 200701
  3. KALINOR [Concomitant]
     Indication: PROPHYLAXIS
     Route: 048
     Dates: start: 20160905, end: 20160907
  4. OMEP [Concomitant]
     Active Substance: OMEPRAZOLE
     Indication: PROPHYLAXIS
     Route: 048
     Dates: start: 20160905, end: 20160907

REACTIONS (1)
  - Multiple sclerosis relapse [Recovered/Resolved]

NARRATIVE: CASE EVENT DATE: 20160905
